FAERS Safety Report 6661540-8 (Version None)
Quarter: 2010Q1

REPORT INFORMATION
  Report Type: 
  Country: None (occurrence: None)
  Receive Date: 20100331
  Receipt Date: 20100318
  Transmission Date: 20100710
  Serious: Yes (Hospitalization, Other)
  Sender: FDA-Public Use
  Company Number: US-BAYER-201013317BCC

PATIENT
  Age: 50 Year
  Sex: Female
  Weight: 73 kg

DRUGS (11)
  1. ALKA-SELTZER PLUS FLU EFFERVESCENT TABLETS [Suspect]
     Indication: NASOPHARYNGITIS
     Dosage: UNKNOWN IF THE CONSUMER TOOK A TOTAL DAILY DOSE OF 2 OR 4 TABLETS
     Route: 048
     Dates: start: 20100101
  2. HYDROXYCHLOROQUINE SULFATE [Concomitant]
     Route: 065
  3. METHOTREXATE [Concomitant]
     Route: 065
  4. MAJOR CALCIUM 600 PLUS D [Concomitant]
     Route: 065
  5. PROAIR HFA [Concomitant]
     Route: 065
  6. QVAR 40 [Concomitant]
     Route: 065
  7. WALGREEN'S FERROUS SULFATE [Concomitant]
     Route: 065
  8. MSG WESTWARD FOLIC ACID [Concomitant]
     Route: 065
  9. MEMBERS MARK LORATADINE [Concomitant]
     Route: 065
  10. MEMBERS MARK OMEGA 3 FISH OIL [Concomitant]
     Route: 065
  11. SHIFF MELATONIN 3 MG WITH THEANINE 25 MG [Concomitant]
     Route: 065

REACTIONS (3)
  - BRONCHOSPASM [None]
  - DYSPNOEA [None]
  - GASTROINTESTINAL DISORDER [None]
